FAERS Safety Report 23776095 (Version 1)
Quarter: 2024Q2

REPORT INFORMATION
  Report Type: Spontaneous
  Country: US (occurrence: US)
  Receive Date: 20240424
  Receipt Date: 20240424
  Transmission Date: 20240716
  Serious: No
  Sender: FDA-Public Use
  Company Number: US-HALEON-2169221

PATIENT
  Age: 86 Year
  Sex: Male

DRUGS (2)
  1. SENSODYNE RAPID RELIEF [Suspect]
     Active Substance: STANNOUS FLUORIDE
     Indication: Product used for unknown indication
     Dosage: EXPDATE:202505 ; 3.4OZ
  2. SENSODYNE PRONAMEL INTENSIVE ENAMEL REPAIR CLEAN MINT [Suspect]
     Active Substance: POTASSIUM NITRATE\SODIUM FLUORIDE
     Indication: Product used for unknown indication
     Dosage: EXPDATE:202605 ; 3.4OZ

REACTIONS (2)
  - Gingival discomfort [Unknown]
  - Stomatitis [Unknown]
